FAERS Safety Report 21583658 (Version 1)
Quarter: 2022Q4

REPORT INFORMATION
  Report Type: Spontaneous
  Country: US (occurrence: None)
  Receive Date: 20221110
  Receipt Date: 20221110
  Transmission Date: 20230113
  Serious: No
  Sender: FDA-Public Use
  Company Number: None

PATIENT
  Age: 69 Year
  Sex: Female

DRUGS (1)
  1. HUMIRA [Suspect]
     Active Substance: ADALIMUMAB
     Indication: Uveitis
     Dosage: OTHER FREQUENCY : 40MG,DAY840MG;?
     Route: 058
     Dates: start: 202202

REACTIONS (2)
  - Sinus disorder [None]
  - Intentional dose omission [None]
